FAERS Safety Report 20623478 (Version 1)
Quarter: 2022Q1

REPORT INFORMATION
  Report Type: Spontaneous
  Country: CA (occurrence: CA)
  Receive Date: 20220322
  Receipt Date: 20220322
  Transmission Date: 20220423
  Serious: Yes (Other)
  Sender: FDA-Public Use
  Company Number: CA-TAKEDA-2022TUS018361

PATIENT
  Age: 48 Year
  Sex: Female

DRUGS (2)
  1. VYVANSE [Suspect]
     Active Substance: LISDEXAMFETAMINE DIMESYLATE
     Indication: Attention deficit hyperactivity disorder
     Dosage: UNK, 1/WEEK
     Route: 048
  2. PAROXETINE [Concomitant]
     Active Substance: PAROXETINE

REACTIONS (2)
  - Hypokinesia [Unknown]
  - Muscle spasms [Unknown]
